FAERS Safety Report 9450637 (Version 1)
Quarter: 2013Q3

REPORT INFORMATION
  Report Type: Spontaneous
  Country: US (occurrence: US)
  Receive Date: 20130809
  Receipt Date: 20130809
  Transmission Date: 20140515
  Serious: Yes (Hospitalization, Other)
  Sender: FDA-Public Use
  Company Number: US-BAYER-2013-096257

PATIENT
  Age: 41 Year
  Sex: Female

DRUGS (2)
  1. BETASERON [Suspect]
  2. COPAXONE [Suspect]
     Indication: MULTIPLE SCLEROSIS
     Dosage: UNK
     Dates: start: 20041015

REACTIONS (3)
  - Renal failure [Recovered/Resolved]
  - Transient ischaemic attack [Recovered/Resolved]
  - Hypertension [Recovered/Resolved]
